FAERS Safety Report 8895716 (Version 3)
Quarter: 2013Q2

REPORT INFORMATION
  Report Type: Spontaneous
  Country: US (occurrence: US)
  Receive Date: 20121108
  Receipt Date: 20130408
  Transmission Date: 20140414
  Serious: Yes (Hospitalization)
  Sender: FDA-Public Use
  Company Number: US-VIROPHARMA INCORPORATED-20121028CINRY3570

PATIENT
  Age: 36 Year
  Sex: Female
  Weight: 70.82 kg

DRUGS (6)
  1. CINRYZE (C1 ESTERASE INHIBITOR (HUMAN)) [Suspect]
     Indication: HEREDITARY ANGIOEDEMA
     Dates: start: 20120607, end: 20121102
  2. CINRYZE (C1 ESTERASE INHIBITOR (HUMAN)) [Suspect]
     Indication: PROPHYLAXIS
  3. SYNTHROID [Concomitant]
     Indication: HYPOTHYROIDISM
     Dosage: UNKNOWN
     Route: 065
     Dates: start: 20120521
  4. XANAX [Concomitant]
     Indication: ANXIETY
     Dosage: UNKNOWN
     Route: 048
  5. PREDNISONE [Concomitant]
     Indication: HEREDITARY ANGIOEDEMA
     Dosage: UNKNOWN
     Route: 048
  6. FLEXERIL [Concomitant]
     Indication: MUSCLE RELAXANT THERAPY
     Dosage: UNKNOWN
     Route: 048

REACTIONS (11)
  - Convulsion [Recovered/Resolved]
  - Grand mal convulsion [Recovered/Resolved]
  - Hereditary angioedema [Recovered/Resolved]
  - Fall [Recovered/Resolved]
  - Head injury [Unknown]
  - Suture insertion [Recovered/Resolved]
  - Laceration [Unknown]
  - Dizziness [Unknown]
  - Balance disorder [Unknown]
  - Therapy change [Not Recovered/Not Resolved]
  - Amnesia [Not Recovered/Not Resolved]
